FAERS Safety Report 5964859-9 (Version None)
Quarter: 2008Q4

REPORT INFORMATION
  Report Type: 
  Country: None (occurrence: None)
  Receive Date: 20081124
  Receipt Date: 20081124
  Transmission Date: 20090506
  Serious: Yes (Hospitalization)
  Sender: FDA-Public Use
  Company Number: None

PATIENT
  Age: 75 Year
  Sex: Female
  Weight: 57.6068 kg

DRUGS (5)
  1. TRAMADOL HCL [Suspect]
     Indication: HEADACHE
     Dosage: 1 Q6H PRN PO
     Route: 048
     Dates: start: 20081114, end: 20081114
  2. VIVELLE-DOT [Concomitant]
  3. AMLODIPINE [Concomitant]
  4. VITMAIN D [Concomitant]
  5. NASONEX [Suspect]

REACTIONS (4)
  - ATRIAL FIBRILLATION [None]
  - HEART RATE INCREASED [None]
  - HEART RATE IRREGULAR [None]
  - HYPOKALAEMIA [None]
